FAERS Safety Report 5133052-4 (Version None)
Quarter: 2006Q4

REPORT INFORMATION
  Report Type: 
  Country: None (occurrence: None)
  Receive Date: 20061017
  Receipt Date: 20061006
  Transmission Date: 20070319
  Serious: Yes (Death, Other)
  Sender: FDA-Public Use
  Company Number: 2006122079

PATIENT
  Sex: Male

DRUGS (1)
  1. LISTERINE ANTISEPTIC MOUTHWASH (MENTHOL, METHYL SALICYLATE, EUCALYPTOL [Suspect]
     Indication: ALCOHOL POISONING
     Dosage: 2-3 BOTTLES A DAY, ORAL
     Route: 048
     Dates: start: 20030101

REACTIONS (2)
  - INTENTIONAL DRUG MISUSE [None]
  - LUNG NEOPLASM MALIGNANT [None]
